FAERS Safety Report 4357434-3 (Version None)
Quarter: 2004Q2

REPORT INFORMATION
  Report Type: 
  Country: None (occurrence: None)
  Receive Date: 20040506
  Receipt Date: 20040429
  Transmission Date: 20050107
  Serious: Yes (Hospitalization)
  Sender: FDA-Public Use
  Company Number: DEWYE731329APR04

PATIENT
  Age: 37 Year
  Sex: Male

DRUGS (11)
  1. RAPAMUNE [Suspect]
     Indication: PROPHYLAXIS AGAINST TRANSPLANT REJECTION
     Dosage: 3 MG, ORAL
     Route: 048
  2. PREDNISONE [Suspect]
     Indication: PROPHYLAXIS AGAINST TRANSPLANT REJECTION
     Dosage: 30 MG, ORAL
     Route: 048
  3. FUROSEMIDE [Concomitant]
  4. LERCANIDIPINE [Concomitant]
  5. SORTIS (ATORVASTATIN SODIUM) [Concomitant]
  6. ALLOPURINOL [Concomitant]
  7. METOPROLOL (METOPROLOL) [Concomitant]
  8. LISINOPRIL [Concomitant]
  9. AQUAPHOR (XIPAMIDE) [Concomitant]
  10. PANTOZOL (PANTOPRAZOLE SODIUM) [Concomitant]
  11. CALCIMAGON (CALCIUM CARBONATE/COLECALCIFEROL) [Concomitant]

REACTIONS (5)
  - ANAEMIA [None]
  - AZOTAEMIA [None]
  - CONDITION AGGRAVATED [None]
  - GENERAL PHYSICAL HEALTH DETERIORATION [None]
  - OEDEMA [None]
